FAERS Safety Report 6413288-2 (Version None)
Quarter: 2009Q4

REPORT INFORMATION
  Report Type: 
  Country: None (occurrence: None)
  Receive Date: 20091026
  Receipt Date: 20091014
  Transmission Date: 20100525
  Serious: Yes (Other)
  Sender: FDA-Public Use
  Company Number: BR-ROCHE-649167

PATIENT
  Sex: Male
  Weight: 64 kg

DRUGS (1)
  1. ROACUTAN [Suspect]
     Indication: ACNE
     Route: 048
     Dates: start: 20090721

REACTIONS (12)
  - ANXIETY [None]
  - BACK PAIN [None]
  - CHOLESTEATOMA [None]
  - DECREASED APPETITE [None]
  - EAR INFECTION [None]
  - INFLUENZA [None]
  - LIP HAEMORRHAGE [None]
  - MOOD ALTERED [None]
  - PAIN IN EXTREMITY [None]
  - RHINITIS [None]
  - SKIN EXFOLIATION [None]
  - WOUND [None]
